FAERS Safety Report 15836276 (Version 2)
Quarter: 2022Q1

REPORT INFORMATION
  Report Type: Report from Study
  Country: US (occurrence: None)
  Receive Date: 20190117
  Receipt Date: 20220118
  Transmission Date: 20220423
  Serious: Yes (Hospitalization)
  Sender: FDA-Public Use
  Company Number: US-ROCHE-2241093

PATIENT
  Age: 63 Year
  Sex: Female
  Weight: 56.2 kg

DRUGS (3)
  1. ATEZOLIZUMAB [Suspect]
     Active Substance: ATEZOLIZUMAB
     Indication: Ovarian cancer
     Dosage: LAST ADMINISTERED DATE ON 06/DEC/2018.
     Route: 041
     Dates: start: 20181120
  2. BEVACIZUMAB [Suspect]
     Active Substance: BEVACIZUMAB
     Indication: Ovarian cancer
     Dosage: LAST ADMINISTERED DATE ON 06/DEC/2018.
     Route: 042
     Dates: start: 20181120
  3. DOXORUBICIN HYDROCHLORIDE [Suspect]
     Active Substance: DOXORUBICIN HYDROCHLORIDE
     Indication: Ovarian cancer
     Dosage: LAST ADMINISTERED DATE ON 20/NOV/2018.
     Route: 042
     Dates: start: 20181120

REACTIONS (4)
  - Upper respiratory tract infection [Recovering/Resolving]
  - Influenza like illness [Recovering/Resolving]
  - Hypoxia [Recovering/Resolving]
  - Pyrexia [Recovering/Resolving]

NARRATIVE: CASE EVENT DATE: 20181208
